FAERS Safety Report 9587965 (Version 1)
Quarter: 2013Q4

REPORT INFORMATION
  Report Type: Spontaneous
  Country: US (occurrence: US)
  Receive Date: 20131003
  Receipt Date: 20131003
  Transmission Date: 20140711
  Serious: Yes (Hospitalization)
  Sender: FDA-Public Use
  Company Number: US-TMC-CABO-13003373

PATIENT
  Sex: Female

DRUGS (12)
  1. COMETRIQ [Suspect]
     Indication: THYROID CANCER
     Dosage: UNK MG, QD
     Route: 048
     Dates: start: 2013, end: 2013
  2. COMETRIQ [Suspect]
     Dosage: 140 MG, QD
     Route: 048
     Dates: start: 2013, end: 20130909
  3. ASPIRIN [Concomitant]
  4. CARDIZEM [Concomitant]
  5. ESTRING [Concomitant]
  6. HYDROCHLOROTHIAZIDE [Concomitant]
  7. DILAUDID [Concomitant]
  8. IBUPROFEN [Concomitant]
  9. METOPROLOL [Concomitant]
  10. CRESTOR [Concomitant]
  11. CARAFATE [Concomitant]
  12. DETROL LA [Concomitant]

REACTIONS (9)
  - Syncope [Not Recovered/Not Resolved]
  - Odynophagia [Not Recovered/Not Resolved]
  - Aphasia [Not Recovered/Not Resolved]
  - Pharyngitis [Not Recovered/Not Resolved]
  - Oesophagitis [Not Recovered/Not Resolved]
  - Oesophageal pain [Not Recovered/Not Resolved]
  - Dysphagia [Not Recovered/Not Resolved]
  - Orthostatic hypotension [Not Recovered/Not Resolved]
  - Dizziness [Not Recovered/Not Resolved]
